FAERS Safety Report 23170298 (Version 2)
Quarter: 2025Q2

REPORT INFORMATION
  Report Type: Spontaneous
  Country: US (occurrence: US)
  Receive Date: 20231110
  Receipt Date: 20250404
  Transmission Date: 20250717
  Serious: Yes (Hospitalization, Other)
  Sender: ASTELLAS
  Company Number: US-ASTELLAS-2023EU004137

PATIENT
  Age: 14 Year
  Sex: Female
  Weight: 66.5 kg

DRUGS (9)
  1. TACROLIMUS [Interacting]
     Active Substance: TACROLIMUS
     Indication: Renal transplant
     Dosage: WITH A GOAL TROUGH OF 4-6NG/ML
     Route: 065
  2. TACROLIMUS [Interacting]
     Active Substance: TACROLIMUS
     Dosage: REINITIATED AT 25% OF HER PREVIOUS DOSE 120 HOURS
     Route: 065
  3. TACROLIMUS [Interacting]
     Active Substance: TACROLIMUS
     Dosage: WITH A GOAL TROUGH OF 4-6NG/ML
     Route: 065
  4. NIRMATRELVIR\RITONAVIR [Interacting]
     Active Substance: NIRMATRELVIR\RITONAVIR
     Indication: COVID-19
     Route: 048
  5. PHENYTOIN [Interacting]
     Active Substance: PHENYTOIN
     Indication: Drug metabolising enzyme increased
     Dosage: CONCENTRATIONS REMAINED LOW (RANGE 1.8-4.2 MCG/ML)
     Route: 042
  6. PHENYTOIN [Interacting]
     Active Substance: PHENYTOIN
     Route: 042
  7. FOSPHENYTOIN [Interacting]
     Active Substance: FOSPHENYTOIN
     Indication: Drug metabolising enzyme increased
     Route: 065
  8. MYCOPHENOLIC ACID [Concomitant]
     Active Substance: MYCOPHENOLIC ACID
     Indication: Renal transplant
     Route: 065
  9. PREDNISONE [Concomitant]
     Active Substance: PREDNISONE
     Indication: Renal transplant
     Route: 065

REACTIONS (6)
  - Acute kidney injury [Recovered/Resolved]
  - Toxicity to various agents [Recovered/Resolved]
  - Condition aggravated [Recovered/Resolved]
  - COVID-19 [Unknown]
  - Drug interaction [Unknown]
  - Drug interaction [Unknown]
